FAERS Safety Report 9111902 (Version 1)
Quarter: 2013Q1

REPORT INFORMATION
  Report Type: Spontaneous
  Country: US (occurrence: US)
  Receive Date: 20130219
  Receipt Date: 20130219
  Transmission Date: 20140127
  Serious: No
  Sender: FDA-Public Use
  Company Number: US-BRISTOL-MYERS SQUIBB COMPANY-16632176

PATIENT
  Age: 63 Year
  Sex: Female
  Weight: 68.03 kg

DRUGS (4)
  1. ORENCIA [Suspect]
     Indication: ARTHRITIS
     Route: 058
  2. METFORMIN [Concomitant]
  3. INSULIN [Concomitant]
  4. LOSARTAN [Concomitant]

REACTIONS (1)
  - Drug dose omission [Unknown]
